FAERS Safety Report 14561886 (Version 1)
Quarter: 2018Q1

REPORT INFORMATION
  Report Type: Report from Study
  Country: US (occurrence: US)
  Receive Date: 20180222
  Receipt Date: 20180222
  Transmission Date: 20180509
  Serious: Yes (Hospitalization, Other)
  Sender: FDA-Public Use
  Company Number: US-GILEAD-2018-0322437

PATIENT
  Age: 53 Year
  Sex: Female

DRUGS (1)
  1. AMBRISENTAN [Suspect]
     Active Substance: AMBRISENTAN
     Indication: PRODUCT USED FOR UNKNOWN INDICATION
     Dosage: 10 MG, UNK
     Route: 065

REACTIONS (6)
  - Cardiovascular disorder [Not Recovered/Not Resolved]
  - Product use issue [Unknown]
  - Oxygen saturation decreased [Unknown]
  - Cardiac failure congestive [Not Recovered/Not Resolved]
  - Pain [Unknown]
  - Unevaluable event [Unknown]
